FAERS Safety Report 11867423 (Version 1)
Quarter: 2015Q4

REPORT INFORMATION
  Report Type: Spontaneous
  Country: GB (occurrence: GB)
  Receive Date: 20151224
  Receipt Date: 20151224
  Transmission Date: 20160305
  Serious: Yes (Other)
  Sender: FDA-Public Use
  Company Number: PHFR2015GB008471

PATIENT
  Sex: Female

DRUGS (2)
  1. PAZOPANIB [Suspect]
     Active Substance: PAZOPANIB
     Indication: PRODUCT USED FOR UNKNOWN INDICATION
     Dosage: 600 MG, UNK
     Route: 065
  2. DENOSUMAB [Suspect]
     Active Substance: DENOSUMAB
     Indication: PRODUCT USED FOR UNKNOWN INDICATION
     Route: 065

REACTIONS (31)
  - Fatigue [Not Recovered/Not Resolved]
  - Dysgeusia [Unknown]
  - Myalgia [Unknown]
  - Dry skin [Unknown]
  - Asthenia [Recovering/Resolving]
  - Aphasia [Unknown]
  - Protein urine present [Unknown]
  - Rhinorrhoea [Unknown]
  - Pain in extremity [Unknown]
  - Dyspnoea [Not Recovered/Not Resolved]
  - Vomiting [Unknown]
  - Constipation [Unknown]
  - Sleep disorder [Unknown]
  - Alopecia [Not Recovered/Not Resolved]
  - Weight decreased [Unknown]
  - Insomnia [Unknown]
  - Haemoglobin decreased [Unknown]
  - Nausea [Unknown]
  - Diarrhoea [Unknown]
  - Back pain [Unknown]
  - Blood urine present [Unknown]
  - Headache [Recovering/Resolving]
  - Platelet count decreased [Unknown]
  - Pelvic pain [Unknown]
  - Dry mouth [Unknown]
  - Hypertension [Unknown]
  - Abasia [Unknown]
  - Epistaxis [Unknown]
  - Decreased appetite [Not Recovered/Not Resolved]
  - Hypophagia [Unknown]
  - Arthralgia [Unknown]
